FAERS Safety Report 21421412 (Version 5)
Quarter: 2022Q4

REPORT INFORMATION
  Report Type: Spontaneous
  Country: RU (occurrence: RU)
  Receive Date: 20221007
  Receipt Date: 20221207
  Transmission Date: 20230112
  Serious: Yes (Life-Threatening, Other)
  Sender: FDA-Public Use
  Company Number: RU-AMGEN-RUSSP2022171105

PATIENT
  Age: 13 Year
  Sex: Female
  Weight: 46 kg

DRUGS (14)
  1. BLINCYTO [Suspect]
     Active Substance: BLINATUMOMAB
     Indication: Acute lymphocytic leukaemia
     Dosage: 9 MICROGRAM
     Route: 040
     Dates: start: 20220930
  2. BLINCYTO [Suspect]
     Active Substance: BLINATUMOMAB
     Dosage: UNK
     Route: 040
  3. De-nol [Concomitant]
     Indication: Gastritis
     Dosage: 240 MILLIGRAM, BID
     Route: 048
     Dates: start: 20220920, end: 20220930
  4. DEXAMETHASONE [Concomitant]
     Active Substance: DEXAMETHASONE
     Route: 040
  5. BISEPTOL [Concomitant]
     Active Substance: SULFAMETHOXAZOLE\TRIMETHOPRIM
     Indication: Prophylaxis
     Dosage: 480 MILLIGRAM
     Route: 048
     Dates: start: 20220820, end: 20220930
  6. OMEPRAZOLE [Concomitant]
     Active Substance: OMEPRAZOLE
     Indication: Gastritis
     Dosage: 20 MILLIGRAM
     Route: 048
     Dates: start: 20220926, end: 20220930
  7. SPIRONOLACTONE [Concomitant]
     Active Substance: SPIRONOLACTONE
     Indication: Gastritis
     Dosage: 50 MILLIGRAM
     Route: 048
     Dates: start: 20220920, end: 20220930
  8. URSOLIV [Concomitant]
     Indication: Hepatitis
     Dosage: 250 MILLIGRAM
     Route: 048
     Dates: start: 20220820, end: 20220930
  9. FUROSEMIDE [Concomitant]
     Active Substance: FUROSEMIDE
     Indication: Endocarditis
     Dosage: UNK MILLIGRAM
     Route: 040
     Dates: start: 20220922, end: 20220926
  10. FUROSEMIDE [Concomitant]
     Active Substance: FUROSEMIDE
     Dosage: 40 MILLIGRAM
     Route: 065
     Dates: start: 20220928, end: 20220930
  11. ENOXAPARIN SODIUM [Concomitant]
     Active Substance: ENOXAPARIN SODIUM
     Indication: Prophylaxis
     Dosage: 4600 INTERNATIONAL UNIT, BID
     Route: 058
     Dates: start: 20220922, end: 20220927
  12. ENOXAPARIN SODIUM [Concomitant]
     Active Substance: ENOXAPARIN SODIUM
     Dosage: 5000 INTERNATIONAL UNIT, BID
     Route: 058
     Dates: start: 20220928, end: 20220930
  13. CARVEDILOL [Concomitant]
     Active Substance: CARVEDILOL
     Indication: Endocarditis
     Dosage: 12.5 MILLIGRAM
     Dates: start: 20220818, end: 20220930
  14. TRIMEDAT [Concomitant]
     Indication: Gastritis
     Dosage: 100 MILLIGRAM, TID

REACTIONS (3)
  - Anaphylactic shock [Recovered/Resolved]
  - Blood pressure decreased [Recovered/Resolved]
  - Respiratory failure [Recovered/Resolved]

NARRATIVE: CASE EVENT DATE: 20220930
